FAERS Safety Report 7865577-2 (Version None)
Quarter: 2011Q4

REPORT INFORMATION
  Report Type: 
  Country: None (occurrence: None)
  Receive Date: 20111028
  Receipt Date: 20110119
  Transmission Date: 20120403
  Serious: No
  Sender: FDA-Public Use
  Company Number: US-GLAXOSMITHKLINE-A0907377A

PATIENT
  Age: 61 Year
  Sex: Female

DRUGS (3)
  1. PROAIR HFA [Concomitant]
  2. ALBUTEROL [Concomitant]
  3. ADVAIR DISKUS 100/50 [Suspect]
     Indication: ASTHMA
     Dosage: 1PUFF TWICE PER DAY
     Route: 055
     Dates: start: 20110114, end: 20110119

REACTIONS (5)
  - ILL-DEFINED DISORDER [None]
  - INSOMNIA [None]
  - ANXIETY [None]
  - DIZZINESS [None]
  - FEELING COLD [None]
